FAERS Safety Report 5315461-3 (Version None)
Quarter: 2007Q2

REPORT INFORMATION
  Report Type: 
  Country: None (occurrence: None)
  Receive Date: 20070503
  Receipt Date: 20070424
  Transmission Date: 20071010
  Serious: Yes (Hospitalization, Disabling)
  Sender: FDA-Public Use
  Company Number: 2007AP02475

PATIENT
  Age: 51 Year
  Sex: Female
  Weight: 56.5 kg

DRUGS (5)
  1. OMEPRAL [Suspect]
     Indication: HELICOBACTER INFECTION
     Route: 048
     Dates: start: 20070410, end: 20070413
  2. AMOXICILLIN TRIHYDRATE [Suspect]
     Indication: HELICOBACTER INFECTION
     Route: 048
     Dates: start: 20070410, end: 20070413
  3. CLARITHROMYCIN [Suspect]
     Indication: HELICOBACTER INFECTION
     Route: 048
     Dates: start: 20070410, end: 20070413
  4. ALLOPURINOL [Concomitant]
     Route: 048
  5. FERROMIA [Concomitant]
     Route: 048

REACTIONS (1)
  - WHITE BLOOD CELL COUNT DECREASED [None]
